FAERS Safety Report 14338325 (Version 5)
Quarter: 2019Q4

REPORT INFORMATION
  Report Type: Spontaneous
  Country: IT (occurrence: IT)
  Receive Date: 20171229
  Receipt Date: 20191220
  Transmission Date: 20200122
  Serious: Yes (Hospitalization, Other)
  Sender: FDA-Public Use
  Company Number: IT-MYLANLABS-2017M1083178

PATIENT
  Age: 50 Year
  Sex: Male

DRUGS (33)
  1. REYATAZ [Interacting]
     Active Substance: ATAZANAVIR SULFATE
     Indication: ACQUIRED IMMUNODEFICIENCY SYNDROME
     Dosage: 300 MG BOTTLE (HIGH DENSITY POLYETHYLENE) 30 CAPSULES
     Route: 048
     Dates: start: 20091007, end: 20150722
  2. SOVALDI [Interacting]
     Active Substance: SOFOSBUVIR
     Dosage: 60 MILLIGRAM
     Route: 065
  3. TRUVADA [Concomitant]
     Active Substance: EMTRICITABINE\TENOFOVIR DISOPROXIL FUMARATE
     Indication: HIV INFECTION
     Dosage: UNK
     Route: 048
     Dates: start: 20091007, end: 20120621
  4. LAMIVUDINE. [Interacting]
     Active Substance: LAMIVUDINE
     Dosage: UNK
  5. KIVEXA [Interacting]
     Active Substance: ABACAVIR SULFATE\LAMIVUDINE
     Indication: HIV INFECTION
     Dosage: UNK (30X300+600 MG TABLETS IN PVC/PVDC/AL BLISTER PACK)
     Route: 048
     Dates: start: 20120621
  6. PERIDON                            /00498201/ [Concomitant]
     Active Substance: DOMPERIDONE
     Indication: NAUSEA
     Dosage: UNK
     Route: 048
     Dates: start: 20110706, end: 20150408
  7. NEORECORMON [Concomitant]
     Active Substance: ERYTHROPOIETIN
     Indication: ANAEMIA
     Dosage: UNK
     Dates: start: 20150708, end: 20151110
  8. COPEGUS [Interacting]
     Active Substance: RIBAVIRIN
     Dosage: 1200 MILLIGRAM, QD
     Route: 065
     Dates: start: 20150603, end: 20150827
  9. TRUVADA [Interacting]
     Active Substance: EMTRICITABINE\TENOFOVIR DISOPROXIL FUMARATE
     Indication: HIV INFECTION
     Dosage: UNK
     Route: 048
  10. DIBASE [Concomitant]
     Active Substance: CHOLECALCIFEROL
     Indication: PRODUCT USED FOR UNKNOWN INDICATION
     Dosage: 20 GTT DROPS
     Route: 048
     Dates: start: 20120522
  11. GAVISCON ADVANCE [Concomitant]
     Active Substance: POTASSIUM BICARBONATE\SODIUM ALGINATE
     Indication: DYSPEPSIA
     Dosage: UNK
     Route: 048
     Dates: start: 20120221, end: 20150408
  12. SOFOSBUVIR [Concomitant]
     Active Substance: SOFOSBUVIR
     Indication: HEPATITIS C
     Dosage: 400 MILLIGRAM 400 MG BOTTLE (HDPE)- 28 TABLETS
     Route: 048
     Dates: start: 20150603
  13. DAKLINZA [Interacting]
     Active Substance: DACLATASVIR
     Indication: HEPATITIS C
     Dosage: 30 MG BLISTER PACK (PVC/PCTFE/AL)-28 TABLETS
     Route: 048
     Dates: start: 20150603, end: 20150722
  14. COPEGUS [Interacting]
     Active Substance: RIBAVIRIN
     Indication: HEPATITIS C
     Dosage: 1000 MILLIGRAM, QD
     Route: 065
     Dates: start: 20150603, end: 201507
  15. TALOFEN [Concomitant]
     Active Substance: PROMAZINE HYDROCHLORIDE
     Indication: PRODUCT USED FOR UNKNOWN INDICATION
     Dosage: 4 GM/100 MLM -30ML BOTTLE SOLUTIONS
     Route: 048
     Dates: start: 20130513
  16. LAMIVUDINE. [Concomitant]
     Active Substance: LAMIVUDINE
     Indication: PRODUCT USED FOR UNKNOWN INDICATION
     Dosage: UNK
     Route: 065
  17. REYATAZ [Interacting]
     Active Substance: ATAZANAVIR SULFATE
     Indication: HIV INFECTION
     Dosage: 300 MILLIGRAM, QD
     Route: 048
     Dates: start: 20091007, end: 20150722
  18. METADONE CLORIDRATO [Concomitant]
     Active Substance: METHADONE HYDROCHLORIDE
     Indication: PRODUCT USED FOR UNKNOWN INDICATION
     Dosage: UNK
     Route: 048
     Dates: start: 20090803
  19. ABACAVIR + LAMIVUDIN [Concomitant]
     Active Substance: ABACAVIR\LAMIVUDINE
     Indication: HIV INFECTION
     Dosage: 1 DOSAGE FORM
     Route: 048
  20. COPEGUS [Interacting]
     Active Substance: RIBAVIRIN
     Dosage: 1200 MILLIGRAM, QD (200 MG -42 TABLETS IN A BOTTLE)
     Route: 048
     Dates: start: 20150603, end: 20151111
  21. COPEGUS [Interacting]
     Active Substance: RIBAVIRIN
     Dosage: UNK
     Route: 065
  22. DAKLINZA [Concomitant]
     Active Substance: DACLATASVIR
     Indication: HEPATITIS C
     Dosage: 30 MILLIGRAM
     Route: 048
     Dates: start: 20150603, end: 20150722
  23. LAMIVUDINE. [Suspect]
     Active Substance: LAMIVUDINE
     Indication: HIV INFECTION
     Dosage: UNK
     Route: 048
  24. DAKLINZA [Interacting]
     Active Substance: DACLATASVIR
     Dosage: 60 MILLIGRAM
     Route: 065
  25. COPEGUS [Interacting]
     Active Substance: RIBAVIRIN
     Dosage: 600 MILLIGRAM, QD
     Route: 065
     Dates: start: 201507
  26. ATAZANAVIR + RITONAVIR [Interacting]
     Active Substance: ATAZANAVIR\RITONAVIR
     Indication: HIV INFECTION
     Dosage: UNK
  27. NORVIR [Interacting]
     Active Substance: RITONAVIR
     Indication: HIV INFECTION
     Dosage: 100 MG, QD (100 MG BOTTLE (HDPE)-30 TABLETS)
     Route: 048
     Dates: start: 20091007, end: 20150722
  28. TALOFEN [Concomitant]
     Active Substance: PROMAZINE HYDROCHLORIDE
     Dosage: 1 DOSAGE FORM 1 DF-4 GM/100 MLM -30ML BOTTLE SOLUTIONS
     Route: 048
  29. NORVIR [Concomitant]
     Active Substance: RITONAVIR
     Indication: PRODUCT USED FOR UNKNOWN INDICATION
     Dosage: 100 MG BOTTLE (HDPE)-30 TABLETS
     Route: 048
  30. RALTEGRAVIR. [Concomitant]
     Active Substance: RALTEGRAVIR
     Indication: HIV INFECTION
     Dosage: UNK
     Route: 065
  31. SOVALDI [Interacting]
     Active Substance: SOFOSBUVIR
     Indication: HEPATITIS C
     Dosage: 400 MG, UNK (400 MG BOTTLE (HDPE)- 28 TABLETS)
     Route: 048
     Dates: start: 20150603, end: 20151111
  32. LAEVOLAC EPS [Concomitant]
     Indication: PRODUCT USED FOR UNKNOWN INDICATION
     Dosage: UNK
     Route: 051
     Dates: start: 20150107
  33. DOMPERIDONE                        /00498202/ [Concomitant]
     Active Substance: DOMPERIDONE MALEATE
     Indication: PRODUCT USED FOR UNKNOWN INDICATION
     Dosage: 20 GTT DROPS
     Route: 048

REACTIONS (8)
  - Haemolytic anaemia [Unknown]
  - Jaundice [Recovering/Resolving]
  - Nephrolithiasis [Recovered/Resolved]
  - Cholelithiasis [Recovered/Resolved]
  - Hyperbilirubinaemia [Recovering/Resolving]
  - Drug interaction [Unknown]
  - Haemoglobin decreased [Not Recovered/Not Resolved]
  - Biliary colic [Unknown]

NARRATIVE: CASE EVENT DATE: 2015
